FAERS Safety Report 8396900-0 (Version None)
Quarter: 2012Q2

REPORT INFORMATION
  Report Type: 
  Country: None (occurrence: None)
  Receive Date: 20120530
  Receipt Date: 20120516
  Transmission Date: 20120825
  Serious: No
  Sender: FDA-Public Use
  Company Number: US-ASTRAZENECA-2012SE31768

PATIENT
  Sex: Female
  Weight: 104.3 kg

DRUGS (12)
  1. NEXIUM [Suspect]
     Route: 048
  2. ZANTAC [Concomitant]
  3. NEXIUM [Suspect]
     Indication: GASTROOESOPHAGEAL REFLUX DISEASE
     Route: 048
  4. PAIN MEDICATION [Concomitant]
     Indication: PAIN
  5. TAGAMET [Concomitant]
  6. AS NEEDED MEDICATION [Concomitant]
  7. HIGH BLOOD PRESSURE MEDICATION [Concomitant]
     Indication: HYPERTENSION
  8. PRILOSEC [Suspect]
     Route: 048
  9. PRILOSEC OTC [Suspect]
     Route: 048
  10. ANTIINFLAMMATORY [Concomitant]
     Indication: BACK DISORDER
  11. REGULAR MEDICATION [Concomitant]
  12. ACIPHEX [Concomitant]

REACTIONS (5)
  - IRRITABLE BOWEL SYNDROME [None]
  - PAIN IN EXTREMITY [None]
  - BACK DISORDER [None]
  - DIABETES MELLITUS [None]
  - DRUG INEFFECTIVE [None]
